FAERS Safety Report 25947529 (Version 3)
Quarter: 2025Q4

REPORT INFORMATION
  Report Type: Spontaneous
  Country: EU (occurrence: EU)
  Receive Date: 20251022
  Receipt Date: 20251222
  Transmission Date: 20260119
  Serious: Yes (Hospitalization, Other)
  Sender: ALEXION PHARMACEUTICALS
  Company Number: EU-ASTRAZENECA-202510EEA014865CZ

PATIENT
  Age: 68 Year
  Sex: Female

DRUGS (3)
  1. IMFINZI [Suspect]
     Active Substance: DURVALUMAB
     Indication: Small cell lung cancer metastatic
     Dosage: UNK
     Route: 065
  2. ETOPOSIDE [Concomitant]
     Active Substance: ETOPOSIDE
     Indication: Small cell lung cancer metastatic
     Dosage: UNK
     Route: 065
  3. CARBOPLATIN [Concomitant]
     Active Substance: CARBOPLATIN
     Indication: Small cell lung cancer metastatic
     Dosage: UNK
     Route: 065

REACTIONS (10)
  - Stomatitis [Unknown]
  - Palmoplantar pustulosis [Unknown]
  - Candida infection [Unknown]
  - Rash maculo-papular [Unknown]
  - Oral herpes [Unknown]
  - Immune-mediated hepatitis [Unknown]
  - Pruritus [Unknown]
  - Liver function test increased [Unknown]
  - Papule [Unknown]
  - Skin toxicity [Unknown]
